FAERS Safety Report 7235973-5 (Version None)
Quarter: 2011Q1

REPORT INFORMATION
  Report Type: 
  Country: None (occurrence: None)
  Receive Date: 20110120
  Receipt Date: 20110119
  Transmission Date: 20110831
  Serious: Yes (Other)
  Sender: FDA-Public Use
  Company Number: B0689013A

PATIENT
  Sex: Male

DRUGS (4)
  1. LAMICTAL [Suspect]
     Indication: EPILEPSY
     Route: 048
     Dates: start: 20101124, end: 20101216
  2. OLANZAPINE [Concomitant]
     Route: 048
     Dates: end: 20101208
  3. QUETIAPINE [Concomitant]
     Route: 048
     Dates: start: 20101208
  4. VALPROATE [Concomitant]
     Dosage: 100MG TWICE PER DAY
     Route: 048
     Dates: start: 20101124

REACTIONS (5)
  - AGGRESSION [None]
  - NASOPHARYNGITIS [None]
  - DERMATITIS ATOPIC [None]
  - RASH [None]
  - BODY TEMPERATURE [None]
